FAERS Safety Report 9911762 (Version 5)
Quarter: 2016Q2

REPORT INFORMATION
  Report Type: Report from Study
  Country: US (occurrence: US)
  Receive Date: 20140219
  Receipt Date: 20160503
  Transmission Date: 20160815
  Serious: Yes (Death)
  Sender: FDA-Public Use
  Company Number: US-ABBVIE-12P-163-0949754-00

PATIENT
  Age: 73 Year
  Sex: Female
  Weight: 98.52 kg

DRUGS (9)
  1. HUMIRA [Suspect]
     Active Substance: ADALIMUMAB
     Indication: PSORIASIS
     Dosage: ONCE
     Route: 058
     Dates: start: 20090701, end: 20090701
  2. GLIPIZIDE. [Concomitant]
     Active Substance: GLIPIZIDE
     Indication: DIABETES MELLITUS
     Dates: start: 2008
  3. AMIODARONE [Concomitant]
     Active Substance: AMIODARONE
     Indication: ANGINA PECTORIS
     Dates: start: 2008
  4. PERSANTINE [Concomitant]
     Active Substance: DIPYRIDAMOLE
     Indication: THROMBOSIS
     Dates: start: 2008
  5. LANTUS [Concomitant]
     Active Substance: INSULIN GLARGINE
     Indication: DIABETES MELLITUS
     Dates: start: 2008
  6. HUMIRA [Suspect]
     Active Substance: ADALIMUMAB
     Route: 058
     Dates: end: 20110101
  7. PLAVIX [Concomitant]
     Active Substance: CLOPIDOGREL BISULFATE
     Indication: ANGINA PECTORIS
     Dates: start: 2008
  8. CELLCEPT [Concomitant]
     Active Substance: MYCOPHENOLATE MOFETIL\MYCOPHENOLATE MOFETIL HYDROCHLORIDE
     Indication: RENAL DISORDER
     Dates: start: 2008
  9. DEMADEX [Concomitant]
     Active Substance: TORSEMIDE
     Indication: RENAL DISORDER
     Dates: start: 2008

REACTIONS (1)
  - Death [Fatal]

NARRATIVE: CASE EVENT DATE: 20110101
